FAERS Safety Report 20043076 (Version 1)
Quarter: 2021Q4

REPORT INFORMATION
  Report Type: Spontaneous
  Country: AU (occurrence: AU)
  Receive Date: 20211108
  Receipt Date: 20211108
  Transmission Date: 20220303
  Serious: Yes (Death, Other)
  Sender: FDA-Public Use
  Company Number: AU-BRISTOL-MYERS SQUIBB COMPANY-BMS-2021-117400

PATIENT
  Age: 56 Year
  Sex: Male
  Weight: 80 kg

DRUGS (6)
  1. OPDIVO [Suspect]
     Active Substance: NIVOLUMAB
     Indication: Oesophageal cancer metastatic
     Dosage: 240 MILLIGRAM, Q2WK
     Route: 042
     Dates: start: 20210121
  2. OPDIVO [Suspect]
     Active Substance: NIVOLUMAB
     Dosage: 2 DOSES
     Route: 065
     Dates: start: 20210312
  3. OPDIVO [Suspect]
     Active Substance: NIVOLUMAB
     Dosage: 2 DOSES
     Route: 065
     Dates: start: 20210408
  4. OPDIVO [Suspect]
     Active Substance: NIVOLUMAB
     Dosage: 2 DOSES
     Route: 065
     Dates: start: 20210511
  5. OPDIVO [Suspect]
     Active Substance: NIVOLUMAB
     Dosage: 2 DOSES
     Route: 065
     Dates: start: 20210708
  6. OPDIVO [Suspect]
     Active Substance: NIVOLUMAB
     Dosage: 240 MILLIGRAM
     Route: 065
     Dates: start: 20210624

REACTIONS (2)
  - Death [Fatal]
  - Intentional product use issue [Unknown]
